FAERS Safety Report 11780065 (Version 1)
Quarter: 2015Q4

REPORT INFORMATION
  Report Type: Spontaneous
  Country: US (occurrence: US)
  Receive Date: 20151126
  Receipt Date: 20151126
  Transmission Date: 20160304
  Serious: No
  Sender: FDA-Public Use
  Company Number: US-JNJFOC-20150917110

PATIENT
  Age: 61 Year
  Sex: Male
  Weight: 92.53 kg

DRUGS (8)
  1. VALERIAN ROOT [Concomitant]
     Active Substance: VALERIAN
     Indication: MUSCLE RELAXANT THERAPY
     Dosage: 4 PER DAY
     Route: 065
  2. SOMA [Concomitant]
     Active Substance: CARISOPRODOL
     Indication: MUSCLE RELAXANT THERAPY
     Route: 065
  3. LISINOPRIL. [Concomitant]
     Active Substance: LISINOPRIL
     Indication: HYPERTENSION
     Dosage: 1 1/2 YEARS
     Route: 065
  4. DIVALPROEX SODIUM. [Concomitant]
     Active Substance: DIVALPROEX SODIUM
     Indication: SEIZURE
     Dosage: YEARS
     Route: 065
  5. DIVALPROEX SODIUM. [Concomitant]
     Active Substance: DIVALPROEX SODIUM
     Indication: HEADACHE
     Dosage: YEARS
     Route: 065
  6. TYLENOL EXTRA STRENGTH [Suspect]
     Active Substance: ACETAMINOPHEN
     Indication: MYALGIA
     Dosage: 1X THEN 1 HOUR LATER ANOTHER 1 TABLET, UPTO 4 TABLETS IN A DAY
     Route: 048
  7. TYLENOL WITH CODEINE [Concomitant]
     Active Substance: ACETAMINOPHEN\CODEINE PHOSPHATE
     Indication: PAIN
     Dosage: 4-6 PER DAY, YEARS
     Route: 065
  8. IBUPROFEN. [Concomitant]
     Active Substance: IBUPROFEN
     Indication: INFLAMMATION
     Dosage: YEARS
     Route: 065

REACTIONS (3)
  - Incorrect drug administration duration [Unknown]
  - Wrong technique in product usage process [Recovered/Resolved]
  - Inappropriate schedule of drug administration [Unknown]
